FAERS Safety Report 4565520-8 (Version None)
Quarter: 2005Q1

REPORT INFORMATION
  Report Type: 
  Country: None (occurrence: None)
  Receive Date: 20050131
  Receipt Date: 20050120
  Transmission Date: 20050727
  Serious: Yes (Hospitalization)
  Sender: FDA-Public Use
  Company Number: FR-GLAXOSMITHKLINE-B0365166A

PATIENT
  Age: 36 Year
  Sex: Male

DRUGS (2)
  1. COMBIVIR [Suspect]
     Indication: HIV INFECTION
     Dosage: 1TAB TWICE PER DAY
     Route: 048
     Dates: start: 20030227, end: 20030319
  2. VIRAMUNE [Suspect]
     Indication: HIV INFECTION
     Dosage: 200MG PER DAY
     Route: 048
     Dates: start: 20030227, end: 20030309

REACTIONS (12)
  - CONJUNCTIVITIS [None]
  - ENTEROBACTER SEPSIS [None]
  - HEADACHE [None]
  - LUNG DISORDER [None]
  - PAIN [None]
  - PHARYNX DISCOMFORT [None]
  - PRURITUS [None]
  - PULMONARY FUNCTION TEST DECREASED [None]
  - PYREXIA [None]
  - RASH MACULO-PAPULAR [None]
  - SKIN DISORDER [None]
  - STEVENS-JOHNSON SYNDROME [None]
